FAERS Safety Report 7842278-8 (Version None)
Quarter: 2011Q4

REPORT INFORMATION
  Report Type: 
  Country: None (occurrence: None)
  Receive Date: 20111025
  Receipt Date: 20111014
  Transmission Date: 20120403
  Serious: Yes (Hospitalization, Other)
  Sender: FDA-Public Use
  Company Number: US-JNJFOC-20110703742

PATIENT
  Sex: Female
  Weight: 23.4 kg

DRUGS (13)
  1. REMICADE [Suspect]
     Indication: INFLAMMATORY BOWEL DISEASE
     Route: 042
     Dates: start: 20110427
  2. ALBUTEROL [Concomitant]
  3. PULMICORT [Concomitant]
  4. ENTOCORT EC [Concomitant]
  5. REMICADE [Suspect]
     Indication: CROHN'S DISEASE
     Route: 042
     Dates: start: 20110427
  6. PENTASA [Concomitant]
  7. REMICADE [Suspect]
     Route: 042
     Dates: start: 20110309
  8. REMICADE [Suspect]
     Route: 042
     Dates: start: 20110309
  9. MESALAMINE [Concomitant]
  10. CLONIDINE [Concomitant]
  11. OMEPRAZOLE [Concomitant]
  12. CONCERTA [Concomitant]
  13. MIRALAX [Concomitant]

REACTIONS (1)
  - SYDENHAM'S CHOREA [None]
